FAERS Safety Report 6947238-7 (Version None)
Quarter: 2010Q3

REPORT INFORMATION
  Report Type: 
  Country: None (occurrence: None)
  Receive Date: 20100825
  Receipt Date: 20100809
  Transmission Date: 20110219
  Serious: Yes (Other)
  Sender: FDA-Public Use
  Company Number: DSA_43745_2010

PATIENT
  Age: 30 Year
  Sex: Male

DRUGS (2)
  1. WELLBUTRIN XL [Suspect]
     Indication: PRODUCT USED FOR UNKNOWN INDICATION
     Dosage: (300 MG QD)
     Dates: start: 20100601, end: 20100601
  2. BUPROPION HCL [Suspect]
     Indication: PRODUCT USED FOR UNKNOWN INDICATION
     Dosage: (150 MG BID)
     Dates: end: 20100601

REACTIONS (1)
  - GRAND MAL CONVULSION [None]
